FAERS Safety Report 13825217 (Version 1)
Quarter: 2017Q3

REPORT INFORMATION
  Report Type: Spontaneous
  Country: US (occurrence: US)
  Receive Date: 20170802
  Receipt Date: 20170802
  Transmission Date: 20171127
  Serious: No
  Sender: FDA-Public Use
  Company Number: PHEH2017US023454

PATIENT
  Sex: Male

DRUGS (3)
  1. PAZEO [Suspect]
     Active Substance: OLOPATADINE HYDROCHLORIDE
     Indication: EYE DISORDER
     Route: 047
  2. PATADAY [Suspect]
     Active Substance: OLOPATADINE HYDROCHLORIDE
     Indication: DRY EYE
     Route: 047
  3. PATANOL [Suspect]
     Active Substance: OLOPATADINE HYDROCHLORIDE
     Indication: PRODUCT USED FOR UNKNOWN INDICATION
     Route: 047

REACTIONS (8)
  - Middle ear effusion [Unknown]
  - Dry eye [Unknown]
  - Drug ineffective [Unknown]
  - Eye pruritus [Unknown]
  - Eye infection [Unknown]
  - Stress [Unknown]
  - Hypoacusis [Unknown]
  - Hypersensitivity [Unknown]
